FAERS Safety Report 5029102-6 (Version None)
Quarter: 2006Q2

REPORT INFORMATION
  Report Type: 
  Country: None (occurrence: None)
  Receive Date: 20060613
  Receipt Date: 20060607
  Transmission Date: 20061013
  Serious: Yes (Death)
  Sender: FDA-Public Use
  Company Number: 2006-143573-NL

PATIENT
  Sex: Male

DRUGS (1)
  1. DANAPAROID SODIUM [Suspect]
     Indication: DISSEMINATED INTRAVASCULAR COAGULATION
     Dosage: INTRAVENOUS (NOS)
     Route: 042
     Dates: start: 20050528, end: 20050613

REACTIONS (1)
  - CEREBRAL HAEMORRHAGE [None]
